FAERS Safety Report 26004645 (Version 2)
Quarter: 2025Q4

REPORT INFORMATION
  Report Type: Report from Study
  Country: CL (occurrence: CL)
  Receive Date: 20251106
  Receipt Date: 20251119
  Transmission Date: 20260117
  Serious: Yes (Hospitalization, Other)
  Sender: ROCHE
  Company Number: CL-ROCHE-10000427834

PATIENT
  Age: 56 Year
  Sex: Female

DRUGS (10)
  1. HERCEPTIN [Suspect]
     Active Substance: TRASTUZUMAB
     Indication: Breast cancer metastatic
     Route: 058
     Dates: start: 20230606
  2. PERJETA [Suspect]
     Active Substance: PERTUZUMAB
     Indication: Breast cancer metastatic
     Route: 042
     Dates: start: 20230606
  3. TAPENTADOL [Concomitant]
     Active Substance: TAPENTADOL
     Indication: Product used for unknown indication
     Dosage: DOSE WAS NOT REPORTED
     Dates: start: 2023
  4. TRAMADOL [Concomitant]
     Active Substance: TRAMADOL
     Indication: Product used for unknown indication
     Dosage: DOSE WAS NOT REPORTED
     Dates: start: 2023
  5. FENOTEROL HYDROBROMIDE\IPRATROPIUM BROMIDE [Concomitant]
     Active Substance: FENOTEROL HYDROBROMIDE\IPRATROPIUM BROMIDE
     Indication: Bronchiectasis
     Dosage: EVERY 8 HOURS ON A REGULAR BASIS.?DOSE WAS NOT REPORTED.
  6. FENOTEROL HYDROBROMIDE\IPRATROPIUM BROMIDE [Concomitant]
     Active Substance: FENOTEROL HYDROBROMIDE\IPRATROPIUM BROMIDE
     Dosage: EVERY 6 HOURS IN CRISIS.?DOSE WAS NOT REPORTED.
  7. FLUTICASONE PROPIONATE\SALMETEROL XINAFOATE [Concomitant]
     Active Substance: FLUTICASONE PROPIONATE\SALMETEROL XINAFOATE
     Indication: Bronchiectasis
     Dosage: EVERY 6 HOURS IN CRISIS.?DOSE WAS NOT REPORTED.
  8. FLUTICASONE PROPIONATE\SALMETEROL XINAFOATE [Concomitant]
     Active Substance: FLUTICASONE PROPIONATE\SALMETEROL XINAFOATE
     Dosage: EVERY 8 HOURS ON A REGULAR BASIS.?DOSE WAS NOT REPORTED.
  9. TIOTROPIUM [Concomitant]
     Active Substance: TIOTROPIUM
     Indication: Bronchiectasis
     Dosage: EVERY 6 HOURS IN CRISIS.?DOSE WAS NOT REPORTED.
  10. TIOTROPIUM [Concomitant]
     Active Substance: TIOTROPIUM
     Dosage: EVERY 8 HOURS ON A REGULAR BASIS.?DOSE WAS NOT REPORTED.

REACTIONS (5)
  - Fall [Recovering/Resolving]
  - Pelvic fracture [Recovering/Resolving]
  - Upper limb fracture [Recovering/Resolving]
  - Cyanosis [Unknown]
  - Hypertension [Unknown]

NARRATIVE: CASE EVENT DATE: 20250901
